FAERS Safety Report 24715090 (Version 1)
Quarter: 2024Q4

REPORT INFORMATION
  Report Type: Spontaneous
  Country: PL (occurrence: PL)
  Receive Date: 20241210
  Receipt Date: 20241210
  Transmission Date: 20250114
  Serious: Yes (Congenital Anomaly, Other)
  Sender: CELLTRION
  Company Number: None

PATIENT

DRUGS (2)
  1. INFLIXIMAB [Suspect]
     Active Substance: INFLIXIMAB
     Indication: Psoriasis
     Dosage: 440 MILLIGRAM
     Route: 042
     Dates: start: 20190320, end: 20190610
  2. IXEKIZUMAB [Suspect]
     Active Substance: IXEKIZUMAB
     Indication: Psoriasis
     Dosage: 80 MILLIGRAM
     Route: 042
     Dates: start: 20190710, end: 20191125

REACTIONS (2)
  - Prostate cancer [Recovering/Resolving]
  - Overdose [Unknown]

NARRATIVE: CASE EVENT DATE: 20191125
